FAERS Safety Report 6234246-7 (Version None)
Quarter: 2009Q2

REPORT INFORMATION
  Report Type: 
  Country: None (occurrence: None)
  Receive Date: 20090618
  Receipt Date: 20090616
  Transmission Date: 20091009
  Serious: Yes (Hospitalization)
  Sender: FDA-Public Use
  Company Number: FR-JNJFOC-20090605134

PATIENT
  Age: 46 Year
  Sex: Male

DRUGS (4)
  1. TAVANIC [Suspect]
     Indication: ANAL ABSCESS
     Route: 065
  2. PROPOFOL [Suspect]
     Indication: GENERAL ANAESTHESIA
     Route: 042
  3. NEXIUM [Concomitant]
     Indication: ABDOMINAL PAIN UPPER
     Route: 048
  4. LEVOTHYROX [Concomitant]
     Indication: THYROIDECTOMY
     Route: 048

REACTIONS (1)
  - RASH PUSTULAR [None]
